FAERS Safety Report 13470901 (Version 2)
Quarter: 2017Q3

REPORT INFORMATION
  Report Type: Report from Study
  Country: US (occurrence: US)
  Receive Date: 20170424
  Receipt Date: 20170717
  Transmission Date: 20171127
  Serious: Yes (Life-Threatening, Hospitalization)
  Sender: FDA-Public Use
  Company Number: US-JNJFOC-20170413526

PATIENT
  Age: 43 Year
  Sex: Male
  Weight: 74.5 kg

DRUGS (1)
  1. APAP/DIPHENHYDRAMINE [Suspect]
     Active Substance: ACETAMINOPHEN\DIPHENHYDRAMINE
     Indication: PRODUCT USED FOR UNKNOWN INDICATION
     Dosage: ABOUT 80 TABLETS
     Route: 048
     Dates: start: 201704

REACTIONS (4)
  - Prothrombin time prolonged [Recovered/Resolved]
  - Suicide attempt [Recovered/Resolved]
  - Transaminases increased [Recovered/Resolved]
  - Intentional overdose [Recovered/Resolved]

NARRATIVE: CASE EVENT DATE: 201704
